FAERS Safety Report 5469216-X (Version None)
Quarter: 2007Q3

REPORT INFORMATION
  Report Type: 
  Country: None (occurrence: None)
  Receive Date: 20070927
  Receipt Date: 20070920
  Transmission Date: 20080115
  Serious: Yes (Hospitalization, Other)
  Sender: FDA-Public Use
  Company Number: GB-JNJFOC-20070904381

PATIENT
  Age: 49 Year
  Sex: Female
  Weight: 70 kg

DRUGS (12)
  1. REMICADE [Suspect]
     Indication: ANKYLOSING SPONDYLITIS
     Route: 042
  2. ACTONEL [Concomitant]
  3. AMITRIPTYLINE HCL [Concomitant]
  4. CYCLOPENTOLATE HCL [Concomitant]
  5. METHYLPREDNISOLONE ACETATE [Concomitant]
  6. DF118 [Concomitant]
     Indication: ANKYLOSING SPONDYLITIS
  7. FERROUS SULFATE TAB [Concomitant]
  8. KETOROLAC [Concomitant]
  9. LISINOPRIL [Concomitant]
  10. OMEPRAZOLE [Concomitant]
     Indication: DYSPEPSIA
     Route: 048
  11. PHENYLBUTAZONE [Concomitant]
     Indication: ANKYLOSING SPONDYLITIS
     Route: 048
  12. PREDNISOLONE [Concomitant]

REACTIONS (1)
  - RENAL CELL CARCINOMA STAGE UNSPECIFIED [None]
